FAERS Safety Report 8406954-0 (Version None)
Quarter: 2012Q2

REPORT INFORMATION
  Report Type: 
  Country: None (occurrence: None)
  Receive Date: 20120529
  Receipt Date: 20050429
  Transmission Date: 20120825
  Serious: Yes (Life-Threatening, Other)
  Sender: FDA-Public Use
  Company Number: 02100-JPN-05-0191

PATIENT
  Age: 86 Year
  Sex: Female

DRUGS (9)
  1. FENILENE (SODIUM FERROUS CITRATE) [Concomitant]
  2. FLAVOSTEN (IPRIFLAVONE) [Concomitant]
  3. TRANTOWA (TRANDOLAPRIL) [Concomitant]
  4. ARICEPT [Suspect]
     Indication: DEMENTIA ALZHEIMER'S TYPE
     Dosage: 3 MG, QD, ORAL 5 MG, QD, ORAL 3 MG, QD, ORAL
     Route: 048
     Dates: start: 20050114, end: 20050127
  5. ARICEPT [Suspect]
     Indication: DEMENTIA ALZHEIMER'S TYPE
     Dosage: 3 MG, QD, ORAL 5 MG, QD, ORAL 3 MG, QD, ORAL
     Route: 048
     Dates: start: 20050221, end: 20050223
  6. ARICEPT [Suspect]
     Indication: DEMENTIA ALZHEIMER'S TYPE
     Dosage: 3 MG, QD, ORAL 5 MG, QD, ORAL 3 MG, QD, ORAL
     Route: 048
     Dates: start: 20050128, end: 20050128
  7. PLETAL [Suspect]
     Indication: LACUNAR INFARCTION
     Dosage: 50 MG, BID, ORAL
     Route: 048
     Dates: start: 20050114, end: 20050223
  8. FLUVASTATIN SODIUM [Suspect]
     Indication: HYPERCHOLESTEROLAEMIA
     Dosage: 20 MG, QD, ORAL
     Route: 048
     Dates: start: 20050114, end: 20050223
  9. NORVASC [Concomitant]

REACTIONS (6)
  - HYPOGLYCAEMIC COMA [None]
  - DEPRESSED LEVEL OF CONSCIOUSNESS [None]
  - MEMORY IMPAIRMENT [None]
  - PALPITATIONS [None]
  - ARRHYTHMIA [None]
  - NAUSEA [None]
